FAERS Safety Report 8933763 (Version 2)
Quarter: 2012Q4

REPORT INFORMATION
  Report Type: 
  Country: FR (occurrence: FR)
  Receive Date: 20121129
  Receipt Date: 20121207
  Transmission Date: 20130627
  Serious: Yes (Life-Threatening)
  Sender: FDA-Public Use
  Company Number: FR-B.I. PHARMACEUTICALS,INC./RIDGEFIELD-2012-FF-01683FF

PATIENT
  Age: 85 None
  Sex: Female
  Weight: 40 kg

DRUGS (4)
  1. PRADAXA [Suspect]
     Indication: ATRIAL FIBRILLATION
     Dosage: 150 mg
     Route: 048
     Dates: start: 201207, end: 20121025
  2. CORDARONE [Suspect]
     Indication: ATRIAL FIBRILLATION
     Dosage: 200 mg
     Route: 048
  3. INEXIUM [Concomitant]
     Dosage: 20 mg
     Route: 048
     Dates: end: 20121026
  4. ATARAX [Concomitant]
     Dosage: 25 mg
     Route: 048

REACTIONS (3)
  - Rectal haemorrhage [Not Recovered/Not Resolved]
  - Overdose [Not Recovered/Not Resolved]
  - Anaemia [Not Recovered/Not Resolved]
